FAERS Safety Report 8366822-X (Version None)
Quarter: 2012Q2

REPORT INFORMATION
  Report Type: 
  Country: None (occurrence: None)
  Receive Date: 20120515
  Receipt Date: 20120515
  Transmission Date: 20120825
  Serious: No
  Sender: FDA-Public Use
  Company Number: None

PATIENT
  Sex: Female
  Weight: 62.1428 kg

DRUGS (1)
  1. ESTRING [Suspect]
     Indication: VULVOVAGINAL DRYNESS
     Dosage: 1 90 DAYS VAG
     Route: 067
     Dates: start: 20120322, end: 20120513

REACTIONS (4)
  - MALAISE [None]
  - VULVOVAGINAL PAIN [None]
  - MUSCULAR WEAKNESS [None]
  - ABDOMINAL PAIN [None]
